FAERS Safety Report 4551234-7 (Version None)
Quarter: 2005Q1

REPORT INFORMATION
  Report Type: 
  Country: None (occurrence: None)
  Receive Date: 20050110
  Receipt Date: 20041227
  Transmission Date: 20050727
  Serious: Yes (Hospitalization, Disabling)
  Sender: FDA-Public Use
  Company Number: 2004AP06459

PATIENT
  Age: 33 Year
  Sex: Female
  Weight: 50.8 kg

DRUGS (9)
  1. XYLOCAINE [Suspect]
     Indication: ANAESTHESIA
     Dosage: 5 ML DAILY RB
     Route: 056
     Dates: start: 20040317, end: 20040317
  2. ALCAINE [Suspect]
     Indication: APPLICATION SITE ANAESTHESIA
     Dosage: 2 GTT DAILY IOC
     Route: 031
     Dates: start: 20040318, end: 20040318
  3. ALCAINE [Suspect]
     Indication: APPLICATION SITE ANAESTHESIA
     Dosage: 2 GTT ONCE IOC
     Route: 031
     Dates: start: 20040408, end: 20040408
  4. AMOXICILLIN [Concomitant]
  5. ACETAMINOPHEN [Concomitant]
  6. ALUMINIUM, MAGNESIUM, DIMETHICAN [Concomitant]
  7. GENTAMICIN [Concomitant]
  8. RINDERON [Concomitant]
  9. EFEMOLIN [Concomitant]

REACTIONS (14)
  - ANAESTHETIC COMPLICATION [None]
  - ANAESTHETIC COMPLICATION NEUROLOGICAL [None]
  - DISCOMFORT [None]
  - DIZZINESS POSTURAL [None]
  - DRUG INEFFECTIVE [None]
  - DYSPNOEA [None]
  - EYELID FUNCTION DISORDER [None]
  - HEADACHE [None]
  - HYPOAESTHESIA [None]
  - IIIRD NERVE INJURY [None]
  - MYALGIA [None]
  - POST PROCEDURAL COMPLICATION [None]
  - POST PROCEDURAL PAIN [None]
  - PROCEDURAL COMPLICATION [None]
